FAERS Safety Report 5284684-4 (Version None)
Quarter: 2007Q1

REPORT INFORMATION
  Report Type: 
  Country: None (occurrence: None)
  Receive Date: 20061229
  Receipt Date: 20051108
  Transmission Date: 20070707
  Serious: Yes (Hospitalization)
  Sender: FDA-Public Use
  Company Number: PHEH2005US09965

PATIENT
  Age: 30 Year
  Sex: Male
  Weight: 95.2 kg

DRUGS (3)
  1. CLOZARIL [Suspect]
     Indication: BIPOLAR DISORDER
     Dosage: 250 MG, QHS, ORAL
     Route: 048
     Dates: start: 20020101, end: 20050922
  2. CYMBALTA [Suspect]
     Indication: BIPOLAR DISORDER
     Dosage: 60 MG, QD, ORAL
     Route: 048
     Dates: start: 20050701
  3. DEPAKOTE (MODAFANIL) [Concomitant]

REACTIONS (2)
  - NEUTROPENIA [None]
  - WHITE BLOOD CELL COUNT DECREASED [None]
